FAERS Safety Report 4642920-9 (Version None)
Quarter: 2005Q2

REPORT INFORMATION
  Report Type: 
  Country: None (occurrence: None)
  Receive Date: 20050421
  Receipt Date: 20050316
  Transmission Date: 20051028
  Serious: Yes (Hospitalization)
  Sender: FDA-Public Use
  Company Number: WAES 0503NOR00042

PATIENT

DRUGS (1)
  1. TAB ETORICOXIB [Suspect]
     Dosage: PO
     Route: 048

REACTIONS (1)
  - MYOCARDIAL INFARCTION [None]
